FAERS Safety Report 8593082-7 (Version None)
Quarter: 2012Q3

REPORT INFORMATION
  Report Type: 
  Country: None (occurrence: None)
  Receive Date: 20120814
  Receipt Date: 20120809
  Transmission Date: 20120928
  Serious: Yes (Other)
  Sender: FDA-Public Use
  Company Number: ES-GLAXOSMITHKLINE-B0822610A

PATIENT
  Age: 75 Year
  Sex: Male

DRUGS (1)
  1. REVOLADE [Suspect]
     Indication: IDIOPATHIC THROMBOCYTOPENIC PURPURA
     Route: 048

REACTIONS (4)
  - FLUID RETENTION [None]
  - RENAL FAILURE [None]
  - CREATININE RENAL CLEARANCE INCREASED [None]
  - OEDEMA [None]
